FAERS Safety Report 25098390 (Version 12)
Quarter: 2025Q3

REPORT INFORMATION
  Report Type: Report from Study
  Country: GB (occurrence: GB)
  Receive Date: 20250320
  Receipt Date: 20250904
  Transmission Date: 20251020
  Serious: Yes (Hospitalization, Other)
  Sender: TAKEDA
  Company Number: GB-TAKEDA-2025TUS017629

PATIENT
  Sex: Male

DRUGS (16)
  1. HUMAN IMMUNOGLOBULIN G [Suspect]
     Active Substance: HUMAN IMMUNOGLOBULIN G
     Indication: Chronic lymphocytic leukaemia
     Dosage: 25 GRAM, 1/WEEK
  2. HUMAN IMMUNOGLOBULIN G [Suspect]
     Active Substance: HUMAN IMMUNOGLOBULIN G
     Indication: Stiff person syndrome
  3. HUMAN IMMUNOGLOBULIN G [Suspect]
     Active Substance: HUMAN IMMUNOGLOBULIN G
  4. HUMAN IMMUNOGLOBULIN G [Suspect]
     Active Substance: HUMAN IMMUNOGLOBULIN G
  5. HUMAN IMMUNOGLOBULIN G [Suspect]
     Active Substance: HUMAN IMMUNOGLOBULIN G
  6. HUMAN IMMUNOGLOBULIN G [Suspect]
     Active Substance: HUMAN IMMUNOGLOBULIN G
  7. HUMAN IMMUNOGLOBULIN G [Suspect]
     Active Substance: HUMAN IMMUNOGLOBULIN G
  8. HUMAN IMMUNOGLOBULIN G [Suspect]
     Active Substance: HUMAN IMMUNOGLOBULIN G
  9. HUMAN IMMUNOGLOBULIN G [Suspect]
     Active Substance: HUMAN IMMUNOGLOBULIN G
  10. HUMAN IMMUNOGLOBULIN G [Suspect]
     Active Substance: HUMAN IMMUNOGLOBULIN G
     Dosage: UNK UNK, 1/WEEK
  11. HUMAN IMMUNOGLOBULIN G [Suspect]
     Active Substance: HUMAN IMMUNOGLOBULIN G
  12. HUMAN IMMUNOGLOBULIN G [Suspect]
     Active Substance: HUMAN IMMUNOGLOBULIN G
  13. HUMAN IMMUNOGLOBULIN G [Suspect]
     Active Substance: HUMAN IMMUNOGLOBULIN G
     Dosage: 32 GRAM, 1/WEEK
  14. HUMAN IMMUNOGLOBULIN G [Suspect]
     Active Substance: HUMAN IMMUNOGLOBULIN G
     Dosage: 28 GRAM, 1/WEEK
  15. HUMAN IMMUNOGLOBULIN G [Suspect]
     Active Substance: HUMAN IMMUNOGLOBULIN G
     Dosage: 32 GRAM, 1/WEEK
  16. HUMAN IMMUNOGLOBULIN G [Suspect]
     Active Substance: HUMAN IMMUNOGLOBULIN G
     Dosage: 32 GRAM, 1/WEEK
     Dates: start: 20250211

REACTIONS (38)
  - Pneumonia [Recovered/Resolved]
  - Productive cough [Unknown]
  - Blood pressure systolic increased [Not Recovered/Not Resolved]
  - Skin lesion [Unknown]
  - Erectile dysfunction [Unknown]
  - Dementia [Recovering/Resolving]
  - Pulmonary fibrosis [Unknown]
  - Musculoskeletal stiffness [Recovered/Resolved]
  - Rhinorrhoea [Unknown]
  - Malaise [Unknown]
  - Hypersomnia [Recovered/Resolved]
  - Influenza [Recovered/Resolved]
  - Mobility decreased [Unknown]
  - Temperature regulation disorder [Unknown]
  - Posture abnormal [Recovering/Resolving]
  - Confusional state [Unknown]
  - Gait disturbance [Unknown]
  - Mood swings [Unknown]
  - Anger [Unknown]
  - Head injury [Unknown]
  - Breath sounds abnormal [Unknown]
  - Depressed mood [Unknown]
  - Limb injury [Unknown]
  - Drug ineffective [Unknown]
  - Pulse abnormal [Unknown]
  - Intentional product use issue [Unknown]
  - Infusion related reaction [Unknown]
  - Infusion site mass [Unknown]
  - Balance disorder [Unknown]
  - Cyanosis [Recovering/Resolving]
  - Infusion site bruising [Not Recovered/Not Resolved]
  - Rash [Recovered/Resolved]
  - Peripheral coldness [Recovering/Resolving]
  - Blood pressure increased [Unknown]
  - Pain in extremity [Recovering/Resolving]
  - Cough [Not Recovered/Not Resolved]
  - Fatigue [Unknown]
  - Off label use [Unknown]
